FAERS Safety Report 21266139 (Version 5)
Quarter: 2023Q2

REPORT INFORMATION
  Report Type: Spontaneous
  Country: US (occurrence: US)
  Receive Date: 20220829
  Receipt Date: 20230505
  Transmission Date: 20230722
  Serious: No
  Sender: FDA-Public Use
  Company Number: US-PFIZER INC-PV202200051115

PATIENT
  Age: 57 Year
  Sex: Female

DRUGS (1)
  1. EUCRISA [Suspect]
     Active Substance: CRISABOROLE
     Indication: Skin plaque
     Dosage: 1 DF, TWICE A DAY AS DIRECTED
     Route: 061

REACTIONS (3)
  - Rash [Unknown]
  - Drug ineffective for unapproved indication [Unknown]
  - Off label use [Unknown]
